FAERS Safety Report 12849809 (Version 1)
Quarter: 2016Q4

REPORT INFORMATION
  Report Type: Spontaneous
  Country: US (occurrence: US)
  Receive Date: 20161014
  Receipt Date: 20161014
  Transmission Date: 20170207
  Serious: No
  Sender: FDA-Public Use
  Company Number: US-ROCHE-1800530

PATIENT
  Age: 66 Year
  Sex: Female

DRUGS (2)
  1. ESBRIET [Suspect]
     Active Substance: PIRFENIDONE
     Indication: PRODUCT USED FOR UNKNOWN INDICATION
     Dosage: 3 CAPS TID
     Route: 048
     Dates: start: 201508
  2. ESBRIET [Suspect]
     Active Substance: PIRFENIDONE
     Dosage: 2 CAPS TID
     Route: 048

REACTIONS (1)
  - Rash [Recovered/Resolved]

NARRATIVE: CASE EVENT DATE: 201606
